FAERS Safety Report 9630588 (Version 1)
Quarter: 2013Q4

REPORT INFORMATION
  Report Type: Spontaneous
  Country: US (occurrence: None)
  Receive Date: 20131016
  Receipt Date: 20131016
  Transmission Date: 20140711
  Serious: Yes (Life-Threatening)
  Sender: FDA-Public Use
  Company Number: None

PATIENT
  Age: 62 Year
  Sex: Female
  Weight: 101.61 kg

DRUGS (1)
  1. NORCO [Suspect]
     Indication: NERVE INJURY
     Route: 048
     Dates: start: 20130415, end: 20130909

REACTIONS (2)
  - Anger [None]
  - Depression [None]
